FAERS Safety Report 10236834 (Version 2)
Quarter: 2014Q2

REPORT INFORMATION
  Report Type: Other
  Country: US (occurrence: US)
  Receive Date: 20140613
  Receipt Date: 20140613
  Transmission Date: 20141212
  Serious: Yes (Hospitalization, Other)
  Sender: FDA-Public Use
  Company Number: US-GSKPPD-2014GSK001109

PATIENT
  Age: 63 Year
  Sex: Male

DRUGS (8)
  1. AVANDIA [Suspect]
     Indication: DIABETES MELLITUS
     Route: 048
     Dates: start: 20060205
  2. ASPIRIN [Concomitant]
  3. COZAAR [Concomitant]
  4. LIPITOR [Concomitant]
  5. ZETIA [Concomitant]
  6. PLAVIX [Concomitant]
  7. COREG [Concomitant]
  8. DILTIAZEM [Concomitant]

REACTIONS (2)
  - Cardiac failure congestive [None]
  - Myocardial infarction [None]
